FAERS Safety Report 23365462 (Version 7)
Quarter: 2024Q2

REPORT INFORMATION
  Report Type: Report from Study
  Country: IL (occurrence: IL)
  Receive Date: 20240104
  Receipt Date: 20240503
  Transmission Date: 20240717
  Serious: Yes (Hospitalization, Other)
  Sender: FDA-Public Use
  Company Number: IL-TAKEDA-2024TUS000450

PATIENT
  Age: 48 Year
  Sex: Male
  Weight: 69 kg

DRUGS (9)
  1. VELAGLUCERASE ALFA [Suspect]
     Active Substance: VELAGLUCERASE ALFA
     Indication: Gaucher^s disease
     Dosage: UNK
     Route: 065
  2. CEFTRIAXONE [Concomitant]
     Active Substance: CEFTRIAXONE\CEFTRIAXONE SODIUM
     Indication: Infection
     Dosage: UNK UNK, QD
     Route: 065
     Dates: start: 20230919, end: 202310
  3. PENICILLIN G [Concomitant]
     Active Substance: PENICILLIN G
     Indication: Infection
     Dosage: UNK UNK, QD
     Route: 065
     Dates: start: 202310, end: 202311
  4. AMOXICILLIN [Concomitant]
     Active Substance: AMOXICILLIN
     Indication: Infection
     Dosage: 1000 MILLIGRAM, TID
     Route: 065
     Dates: start: 202311, end: 20240111
  5. ELIQUIS [Concomitant]
     Active Substance: APIXABAN
     Indication: Thrombosis
     Dosage: 2.5 MILLIGRAM, BID
     Route: 065
     Dates: start: 20231108
  6. DIPYRONE [Concomitant]
     Active Substance: DIPYRONE
     Indication: Pain management
     Dosage: 1000 MILLIGRAM
     Route: 048
     Dates: start: 20240209
  7. LORATADINE [Concomitant]
     Active Substance: LORATADINE
     Dosage: 10 MILLIGRAM
     Dates: start: 20240209
  8. PERCOCET [Concomitant]
     Active Substance: ACETAMINOPHEN\OXYCODONE HYDROCHLORIDE
     Dosage: 1 DOSAGE FORM, TID
     Dates: start: 20240209
  9. ACETAMINOPHEN [Concomitant]
     Active Substance: ACETAMINOPHEN
     Dosage: 1000 MILLIGRAM, TID
     Dates: start: 20240209

REACTIONS (2)
  - Osteonecrosis [Recovered/Resolved]
  - Femur fracture [Recovered/Resolved]

NARRATIVE: CASE EVENT DATE: 20230901
